FAERS Safety Report 8579179-6 (Version None)
Quarter: 2012Q3

REPORT INFORMATION
  Report Type: 
  Country: None (occurrence: None)
  Receive Date: 20120808
  Receipt Date: 20120806
  Transmission Date: 20120928
  Serious: No
  Sender: FDA-Public Use
  Company Number: US-PFIZER INC-2012191554

PATIENT
  Age: 27 Year
  Sex: Female
  Weight: 122 kg

DRUGS (2)
  1. CHANTIX [Suspect]
     Indication: SMOKING CESSATION THERAPY
     Dosage: 0.5 MG, 1X/DAY
     Route: 048
     Dates: start: 20120703, end: 20120701
  2. CHANTIX [Suspect]
     Dosage: UNK
     Route: 048
     Dates: start: 20120701, end: 20120701

REACTIONS (5)
  - ARTHRALGIA [None]
  - CHEST PAIN [None]
  - MYALGIA [None]
  - TACHYCARDIA [None]
  - LYMPHADENITIS [None]
